FAERS Safety Report 6940912-8 (Version None)
Quarter: 2010Q3

REPORT INFORMATION
  Report Type: 
  Country: None (occurrence: None)
  Receive Date: 20100825
  Receipt Date: 20100817
  Transmission Date: 20110219
  Serious: Yes (Hospitalization)
  Sender: FDA-Public Use
  Company Number: A0785437A

PATIENT
  Age: 54 Year
  Sex: Male

DRUGS (4)
  1. AVANDIA [Suspect]
     Indication: TYPE 2 DIABETES MELLITUS
     Dosage: 8MG PER DAY
     Route: 048
     Dates: start: 20000601, end: 20050901
  2. GLUCOPHAGE [Concomitant]
  3. CAPOTEN [Concomitant]
  4. ASPIRIN [Concomitant]

REACTIONS (1)
  - MYOCARDIAL INFARCTION [None]
